FAERS Safety Report 24140870 (Version 1)
Quarter: 2024Q3

REPORT INFORMATION
  Report Type: Spontaneous
  Country: US (occurrence: None)
  Receive Date: 20240725
  Receipt Date: 20240725
  Transmission Date: 20241016
  Serious: Yes (Other)
  Sender: Public
  Company Number: None

PATIENT
  Age: 65 Year
  Sex: Female
  Weight: 88.2 kg

DRUGS (2)
  1. LENALIDOMIDE [Suspect]
     Active Substance: LENALIDOMIDE
     Indication: Plasma cell myeloma
     Dosage: FREQUENCY : DAILY;?
     Route: 048
     Dates: start: 20240515
  2. LENALIDOMIDE [Concomitant]
     Active Substance: LENALIDOMIDE
     Dates: start: 20240517

REACTIONS (3)
  - Dyspnoea [None]
  - Dyspnoea [None]
  - Haemoglobin decreased [None]

NARRATIVE: CASE EVENT DATE: 20240725
